FAERS Safety Report 4690919-9 (Version None)
Quarter: 2005Q2

REPORT INFORMATION
  Report Type: 
  Country: None (occurrence: None)
  Receive Date: 20050614
  Receipt Date: 20050614
  Transmission Date: 20051028
  Serious: Yes (Hospitalization)
  Sender: FDA-Public Use
  Company Number: None

PATIENT
  Age: 77 Year
  Sex: Male

DRUGS (3)
  1. FLOMAX [Suspect]
     Indication: URINARY RETENTION
     Dosage: PO DAILY [YEARS]
     Route: 048
  2. MIRAPEX [Concomitant]
  3. METOPROLOL [Concomitant]

REACTIONS (2)
  - EYE OPERATION COMPLICATION [None]
  - SURGICAL PROCEDURE REPEATED [None]
